FAERS Safety Report 6673059-9 (Version None)
Quarter: 2010Q2

REPORT INFORMATION
  Report Type: 
  Country: None (occurrence: None)
  Receive Date: 20100408
  Receipt Date: 20100402
  Transmission Date: 20101027
  Serious: Yes (Death)
  Sender: FDA-Public Use
  Company Number: PHHY2010DE21410

PATIENT
  Sex: Male
  Weight: 109 kg

DRUGS (14)
  1. ALISKIREN ALI+ [Suspect]
     Indication: HYPERTENSION
     Dosage: 300 MG/DAY
     Dates: start: 20090216
  2. METFORMIN [Suspect]
     Dosage: 1700 MG/D
  3. AMLODIPINE [Suspect]
     Dosage: 5  MG/D
  4. GLUCOBAY [Suspect]
     Dosage: 100 MG/D
  5. JANUVIA [Suspect]
     Dosage: 100 MG/D
  6. MOLSIDOMINE [Suspect]
     Dosage: 8 MG/D
  7. MICARDIS HCT [Suspect]
     Dosage: 12.5/80 MG/DAY
  8. ACETYLSALICYLIC ACID [Suspect]
     Dosage: 100 MG/D
  9. JODTHYROX [Suspect]
     Dosage: 100 MG/DAY
  10. OMEGA-3-ACID ETHYL ESTERS [Suspect]
     Dosage: 1000 MG/DAY
  11. ACE INHIBITOR NOS [Concomitant]
  12. BETA BLOCKING AGENTS [Concomitant]
  13. ALFA-ADRENOCEPTOR BLOCKING AGENTS [Concomitant]
  14. STATIN [Concomitant]

REACTIONS (2)
  - ARRHYTHMIA [None]
  - CARDIAC ARREST [None]
